FAERS Safety Report 7581223-X (Version None)
Quarter: 2011Q2

REPORT INFORMATION
  Report Type: 
  Country: None (occurrence: None)
  Receive Date: 20110629
  Receipt Date: 20110617
  Transmission Date: 20111010
  Serious: Yes (Other)
  Sender: FDA-Public Use
  Company Number: CA-JNJFOC-20110102542

PATIENT
  Sex: Female
  Weight: 66 kg

DRUGS (25)
  1. DILAUDID [Concomitant]
     Indication: PAIN
     Dosage: PRN
     Dates: start: 20100428
  2. PROCHLORPERAZINE TAB [Concomitant]
     Dosage: PRN
     Dates: start: 20100405
  3. CORTISONE ACETATE [Concomitant]
     Indication: PREMEDICATION
     Dates: start: 20110119
  4. REMICADE [Suspect]
     Route: 042
     Dates: start: 20100601
  5. NEXIUM [Concomitant]
     Dosage: IN THE AM
  6. ACETAMINOPHEN [Concomitant]
     Indication: PREMEDICATION
     Dosage: PRN
     Route: 048
     Dates: start: 20100319
  7. REMICADE [Suspect]
     Indication: CROHN'S DISEASE
     Route: 042
     Dates: start: 20100709
  8. REMICADE [Suspect]
     Route: 042
     Dates: start: 20110118
  9. REMICADE [Suspect]
     Route: 042
     Dates: start: 20110106
  10. DICYCLOMINE [Concomitant]
     Dosage: PRN
     Dates: start: 20100330
  11. FLONASE [Concomitant]
     Dosage: PRN  2 SPRAY EACH NOSTRIL AT NIGHT
     Route: 055
     Dates: start: 20100319
  12. DILAUDID [Concomitant]
     Dosage: PRN
     Dates: start: 20100319
  13. ACETAMINOPHEN [Concomitant]
     Route: 048
     Dates: start: 20110119
  14. BENADRYL [Concomitant]
     Indication: PREMEDICATION
     Route: 048
     Dates: start: 20110119
  15. PREDNISONE [Concomitant]
  16. SOLU-CORTEF [Concomitant]
     Indication: PREMEDICATION
     Route: 042
     Dates: start: 20110119
  17. FLONASE [Concomitant]
     Dosage: PRN
     Route: 055
     Dates: start: 20100330
  18. QUETIAPINE [Concomitant]
     Dates: start: 20100513
  19. PURINETHOL [Concomitant]
     Dosage: IN THE AM
     Dates: start: 20100513
  20. FLURAZEPAM [Concomitant]
     Dates: start: 20100429
  21. METHOTREXATE [Concomitant]
     Route: 058
     Dates: start: 20100422
  22. PENTASA [Concomitant]
  23. REMICADE [Suspect]
     Dosage: 2 INFUSIONS ON UNSPECIFIED DATES
     Route: 042
  24. NICODERM [Concomitant]
     Dates: start: 20100402
  25. LACTULOSE [Concomitant]
     Dates: start: 20100330

REACTIONS (7)
  - PNEUMONITIS [None]
  - OXYGEN SATURATION DECREASED [None]
  - NAUSEA [None]
  - INFUSION RELATED REACTION [None]
  - ERYTHEMA [None]
  - DYSPNOEA [None]
  - RASH [None]
